FAERS Safety Report 26066372 (Version 1)
Quarter: 2025Q4

REPORT INFORMATION
  Report Type: Spontaneous
  Country: EU (occurrence: EU)
  Receive Date: 20251119
  Receipt Date: 20251119
  Transmission Date: 20260117
  Serious: Yes (Death, Other)
  Sender: AMGEN
  Company Number: EU-AMGEN-FRASP2025224828

PATIENT

DRUGS (3)
  1. TRASTUZUMAB [Suspect]
     Active Substance: TRASTUZUMAB
     Indication: HER2 positive breast cancer
     Dosage: UNK
     Route: 065
  2. ADO-TRASTUZUMAB EMTANSINE [Suspect]
     Active Substance: ADO-TRASTUZUMAB EMTANSINE
     Indication: HER2 positive breast cancer
     Dosage: 3.6 MILLIGRAM/KILOGRAM, Q3WK
     Route: 065
  3. PERTUZUMAB [Suspect]
     Active Substance: PERTUZUMAB
     Indication: HER2 positive breast cancer
     Dosage: UNK
     Route: 065

REACTIONS (30)
  - Breast cancer recurrent [Fatal]
  - Thrombocytopenia [Unknown]
  - Neutropenia [Unknown]
  - Breast cancer metastatic [Fatal]
  - Invasive lobular breast carcinoma [Unknown]
  - Neuropathy peripheral [Unknown]
  - Hyperbilirubinaemia [Unknown]
  - Arthralgia [Unknown]
  - Myalgia [Unknown]
  - Alanine aminotransferase increased [Unknown]
  - Aspartate aminotransferase increased [Unknown]
  - Nausea [Unknown]
  - Headache [Unknown]
  - Epistaxis [Unknown]
  - Constipation [Unknown]
  - Anaemia [Unknown]
  - Abdominal pain upper [Unknown]
  - Diarrhoea [Unknown]
  - Dysgeusia [Unknown]
  - Gingival bleeding [Unknown]
  - Abdominal pain [Unknown]
  - Ejection fraction decreased [Unknown]
  - Rhinitis [Unknown]
  - Lung disorder [Unknown]
  - Asthenia [Unknown]
  - Mucosal dryness [Unknown]
  - Dry skin [Unknown]
  - Mucosal inflammation [Unknown]
  - General physical health deterioration [Unknown]
  - Off label use [Unknown]
